FAERS Safety Report 16711174 (Version 10)
Quarter: 2020Q2

REPORT INFORMATION
  Report Type: Report from Study
  Country: US (occurrence: US)
  Receive Date: 20190816
  Receipt Date: 20200528
  Transmission Date: 20200713
  Serious: Yes (Hospitalization, Other)
  Sender: FDA-Public Use
  Company Number: US-SHIRE-US201925658

PATIENT
  Age: 41 Year
  Sex: Female

DRUGS (4)
  1. NATPARA (PARATHYROID HORMONE) [Suspect]
     Active Substance: PARATHYROID HORMONE
     Dosage: 200 MICROGRAM, 1X/DAY:QD
     Route: 058
     Dates: start: 20151105
  2. FORTEO [Concomitant]
     Active Substance: TERIPARATIDE
     Indication: HYPOPARATHYROIDISM
  3. NATPARA (PARATHYROID HORMONE) [Suspect]
     Active Substance: PARATHYROID HORMONE
     Dosage: 100 MICROGRAM, 2X/DAY:BID
     Route: 058
     Dates: start: 20150527
  4. NATPARA (PARATHYROID HORMONE) [Suspect]
     Active Substance: PARATHYROID HORMONE
     Indication: HYPOPARATHYROIDISM
     Dosage: 100 MICROGRAM, 2X/DAY:BID
     Route: 065
     Dates: start: 20151105

REACTIONS (8)
  - Pulmonary embolism [Recovering/Resolving]
  - Product supply issue [Unknown]
  - Product dose omission [Unknown]
  - Feeling abnormal [Unknown]
  - Recalled product [Unknown]
  - Off label use [Unknown]
  - Blood calcium decreased [Recovered/Resolved]
  - Arrhythmia [Unknown]

NARRATIVE: CASE EVENT DATE: 20190729
